FAERS Safety Report 14174258 (Version 1)
Quarter: 2017Q4

REPORT INFORMATION
  Report Type: Spontaneous
  Country: DE (occurrence: DE)
  Receive Date: 20171109
  Receipt Date: 20171109
  Transmission Date: 20180321
  Serious: Yes (Other)
  Sender: FDA-Public Use
  Company Number: DE-AMGEN-DEUSP2017160847

PATIENT
  Age: 67 Year
  Sex: Female
  Weight: 97 kg

DRUGS (21)
  1. AMLODIPINE [Concomitant]
     Active Substance: AMLODIPINE BESYLATE
     Dosage: 5 MG, BID
  2. ALLOPURINOL. [Concomitant]
     Active Substance: ALLOPURINOL
     Dosage: 100 MG, QD
  3. OXAZEPAM. [Concomitant]
     Active Substance: OXAZEPAM
     Dosage: 10 MG, UNK UPTO 1 TABLET AT NIGHT
  4. TORASEMID [Concomitant]
     Active Substance: TORSEMIDE
     Dosage: 200 MG, QD
  5. CETIRIZINE DIHYDROCHLORIDE [Concomitant]
     Active Substance: CETIRIZINE HYDROCHLORIDE
     Dosage: 10 MG, AS NECESSARY
  6. NOVAMINSULFON [Concomitant]
     Active Substance: METAMIZOLE
     Indication: PAIN
     Dosage: 500 MG, QID
  7. PARSABIV [Suspect]
     Active Substance: ETELCALCETIDE HYDROCHLORIDE
     Indication: HYPERPARATHYROIDISM SECONDARY
     Dosage: 5 MG, 3 TIMES/WK
     Route: 042
     Dates: start: 20170806, end: 20171025
  8. L-THYROXIN HENNING [Concomitant]
     Active Substance: LEVOTHYROXINE SODIUM
     Dosage: UNK UNK, QD
  9. SIMVAHEXAL [Concomitant]
     Active Substance: SIMVASTATIN
     Dosage: 40 MG, QD
  10. METOPROLOLSUCCINAAT [Concomitant]
     Active Substance: METOPROLOL SUCCINATE
     Dosage: 95 MG, UNK
  11. VALSARTAN. [Concomitant]
     Active Substance: VALSARTAN
     Dosage: 40 MG, QD
  12. IBUPROFEN. [Concomitant]
     Active Substance: IBUPROFEN
     Dosage: 400 MG, QID
  13. MCP [Concomitant]
     Active Substance: METOCLOPRAMIDE HYDROCHLORIDE
     Dosage: 1 MG/ML, UNK, 20 DROPS BEFORE DINNER
  14. TRYASOL CODEIN [Concomitant]
     Active Substance: CODEINE PHOSPHATE
     Indication: COUGH
     Dosage: UNK, 8 TO 10 DROPS BY NIGHT
  15. PHOSPHONORM [Concomitant]
     Active Substance: ALUMINUM CHLOROHYDRATE
  16. ASPIRIN. [Concomitant]
     Active Substance: ASPIRIN
     Indication: EPISTAXIS
     Dosage: UNK, EVERY 2 DAYS
  17. RANITIDIN [Concomitant]
     Active Substance: RANITIDINE HYDROCHLORIDE
     Dosage: 150 MG, QD
  18. RESTEX [Concomitant]
     Active Substance: BENSERAZIDE
     Dosage: UNK UNK, QD 100MG/25MG
  19. MIMPARA [Suspect]
     Active Substance: CINACALCET HYDROCHLORIDE
     Indication: PRODUCT USED FOR UNKNOWN INDICATION
     Dosage: 60 UNK, UNK
     Route: 065
  20. SALBUTAMOL [Concomitant]
     Active Substance: ALBUTEROL
     Indication: DYSPNOEA
     Dosage: UNK
  21. NORSPAN [Concomitant]
     Active Substance: BUPRENORPHINE
     Dosage: 10 MUG, QH

REACTIONS (2)
  - Nausea [Recovered/Resolved]
  - Vomiting [Recovered/Resolved]

NARRATIVE: CASE EVENT DATE: 201708
